FAERS Safety Report 5965462-7 (Version None)
Quarter: 2008Q4

REPORT INFORMATION
  Report Type: 
  Country: None (occurrence: None)
  Receive Date: 20081125
  Receipt Date: 20080627
  Transmission Date: 20090506
  Serious: No
  Sender: FDA-Public Use
  Company Number: US-AMGEN-QUU256400

PATIENT
  Sex: Female

DRUGS (2)
  1. ENBREL [Suspect]
     Indication: RHEUMATOID ARTHRITIS
     Route: 058
     Dates: start: 20070301
  2. METHOTREXATE [Concomitant]
     Dates: start: 20050101

REACTIONS (5)
  - BIOPSY SKIN ABNORMAL [None]
  - JOINT RANGE OF MOTION DECREASED [None]
  - MELANOCYTIC NAEVUS [None]
  - PAIN [None]
  - POST PROCEDURAL INFECTION [None]
